FAERS Safety Report 20329175 (Version 1)
Quarter: 2022Q1

REPORT INFORMATION
  Report Type: Spontaneous
  Country: CN (occurrence: CN)
  Receive Date: 20220112
  Receipt Date: 20220112
  Transmission Date: 20220424
  Serious: Yes (Other)
  Sender: FDA-Public Use
  Company Number: CN-PFIZER INC-202200001156

PATIENT
  Age: 64 Year
  Sex: Male

DRUGS (6)
  1. LINEZOLID [Suspect]
     Active Substance: LINEZOLID
     Indication: Diabetic foot
     Dosage: 0.6 G, 2X/DAY
     Route: 048
     Dates: start: 20211213, end: 20211220
  2. LINEZOLID [Suspect]
     Active Substance: LINEZOLID
     Indication: Gangrene
  3. CEFOPERAZONE SODIUM\SULBACTAM SODIUM [Suspect]
     Active Substance: CEFOPERAZONE SODIUM\SULBACTAM SODIUM
     Indication: Diabetic foot
     Dosage: 1.5 G, 2X/DAY
     Route: 041
     Dates: start: 20211211, end: 20211220
  4. CEFOPERAZONE SODIUM\SULBACTAM SODIUM [Suspect]
     Active Substance: CEFOPERAZONE SODIUM\SULBACTAM SODIUM
     Indication: Gangrene
  5. SODIUM CHLORIDE [Concomitant]
     Active Substance: SODIUM CHLORIDE
     Indication: Diabetic foot
     Dosage: 100 ML, 2X/DAY
     Route: 041
     Dates: start: 20211211, end: 20211220
  6. SODIUM CHLORIDE [Concomitant]
     Active Substance: SODIUM CHLORIDE
     Indication: Gangrene

REACTIONS (2)
  - Cognitive disorder [Recovering/Resolving]
  - Off label use [Unknown]

NARRATIVE: CASE EVENT DATE: 20211211
